FAERS Safety Report 6585529-2 (Version None)
Quarter: 2010Q1

REPORT INFORMATION
  Report Type: 
  Country: None (occurrence: None)
  Receive Date: 20100217
  Receipt Date: 20100204
  Transmission Date: 20100710
  Serious: Yes (Hospitalization)
  Sender: FDA-Public Use
  Company Number: FR-ELI_LILLY_AND_COMPANY-FR201002001442

PATIENT
  Sex: Female
  Weight: 64 kg

DRUGS (7)
  1. SOMATROPIN [Suspect]
     Indication: HYPOPITUITARISM
     Dosage: 1.2 MG, DAILY (1/D)
     Route: 058
     Dates: start: 20040712
  2. LEVOTHYROXINE SODIUM [Concomitant]
     Indication: HYPOPITUITARISM
     Dates: start: 20030602
  3. HYDROCORTISONE [Concomitant]
     Indication: ADRENAL INSUFFICIENCY
     Dates: start: 20030601
  4. HYDROCORTISONE [Concomitant]
     Dosage: 10 MG, 3/D
  5. DHEA [Concomitant]
     Indication: PROPHYLAXIS
     Dates: start: 20030329
  6. MINIRIN [Concomitant]
     Indication: DIABETES INSIPIDUS
     Dates: start: 20030601
  7. CLIMASTON [Concomitant]
     Indication: PROPHYLAXIS
     Dates: start: 20071207

REACTIONS (2)
  - ADRENAL INSUFFICIENCY [None]
  - GASTROENTERITIS [None]
